FAERS Safety Report 5719648-7 (Version None)
Quarter: 2008Q2

REPORT INFORMATION
  Report Type: 
  Country: None (occurrence: None)
  Receive Date: 20080423
  Receipt Date: 20070424
  Transmission Date: 20081010
  Serious: Yes (Other)
  Sender: FDA-Public Use
  Company Number: 236758

PATIENT
  Age: 60 Year
  Sex: Female

DRUGS (6)
  1. AVASTIN [Suspect]
     Indication: NON-SMALL CELL LUNG CANCER
     Dosage: 15 MG/KG, Q3W
     Dates: start: 20061110
  2. TAXOTERE [Concomitant]
  3. GEMZAR [Concomitant]
  4. ZOMETA [Concomitant]
  5. TAXOL [Concomitant]
  6. CARBOPLATIN [Concomitant]

REACTIONS (1)
  - DYSPNOEA [None]
